FAERS Safety Report 9747065 (Version 1)
Quarter: 2013Q4

REPORT INFORMATION
  Report Type: Report from Study
  Country: US (occurrence: US)
  Receive Date: 20131211
  Receipt Date: 20131211
  Transmission Date: 20140711
  Serious: Yes (Hospitalization)
  Sender: FDA-Public Use
  Company Number: US-B.I. PHARMACEUTICALS,INC./RIDGEFIELD-2013-BI-41061BI

PATIENT
  Age: 91 Year
  Sex: Male
  Weight: 77.4 kg

DRUGS (1)
  1. PRADAXA [Suspect]
     Indication: ATRIAL FIBRILLATION
     Dosage: TOTAL DAILY DOSE: 150
     Route: 048
     Dates: start: 20130621, end: 20131007

REACTIONS (1)
  - Blood urine present [Recovered/Resolved]
